FAERS Safety Report 22256661 (Version 2)
Quarter: 2023Q2

REPORT INFORMATION
  Report Type: Spontaneous
  Country: JP (occurrence: JP)
  Receive Date: 20230426
  Receipt Date: 20230530
  Transmission Date: 20230721
  Serious: Yes (Life-Threatening, Hospitalization)
  Sender: FDA-Public Use
  Company Number: JP-Eisai-202300625_LEN-EC_P_1

PATIENT
  Age: 54 Year
  Sex: Female

DRUGS (3)
  1. LENVIMA [Suspect]
     Active Substance: LENVATINIB
     Indication: Endometrial cancer
     Route: 048
     Dates: start: 20220506, end: 20230322
  2. KEYTRUDA [Suspect]
     Active Substance: PEMBROLIZUMAB
     Indication: Endometrial cancer
     Route: 041
     Dates: start: 20220506, end: 20230322
  3. HYDROCORTISONE [Concomitant]
     Active Substance: HYDROCORTISONE
     Indication: Adrenal disorder
     Dosage: DOSE AND FREQUENCY UNKNOWN
     Dates: start: 20230322

REACTIONS (2)
  - Meningitis [Recovered/Resolved]
  - Adrenal disorder [Recovered/Resolved]

NARRATIVE: CASE EVENT DATE: 20230322
